FAERS Safety Report 9541733 (Version 1)
Quarter: 2013Q2

REPORT INFORMATION
  Report Type: Spontaneous
  Country: US (occurrence: None)
  Receive Date: 20130524
  Receipt Date: 20130524
  Transmission Date: 20140414
  Serious: No
  Sender: FDA-Public Use
  Company Number: PHEH2012US025390

PATIENT
  Age: 48 Year
  Sex: Female
  Weight: 63.9 kg

DRUGS (8)
  1. GILENYA (FINGOLIMOD) CAPSULE, 0.5MG [Suspect]
     Indication: RELAPSING-REMITTING MULTIPLE SCLEROSIS
     Route: 048
     Dates: start: 20121219
  2. ESTRADIOL (ESTRADIOL) (GEL) [Concomitant]
  3. PROBIOTICS (NO INGREDIENTS/SUBSTANCES) [Concomitant]
  4. ADVIL FLU + BODY ACHE (IBUPROFEN, PSEUDOEPHEDRINE HYDROCHLORIDE) [Concomitant]
  5. ALEVE (NAPROXEN SODIUM) [Concomitant]
  6. MOBIC (MELOXICAM) [Concomitant]
  7. TRILEPTAL (OXCARBAZEPINE) [Concomitant]
  8. UNISON (DL-LACTIC ACID, HYDROCORTISONE, UREA) [Concomitant]

REACTIONS (5)
  - Chest discomfort [None]
  - Movement disorder [None]
  - Pyrexia [None]
  - Influenza [None]
  - Vision blurred [None]
